FAERS Safety Report 25364093 (Version 1)
Quarter: 2025Q2

REPORT INFORMATION
  Report Type: Spontaneous
  Country: US (occurrence: US)
  Receive Date: 20250527
  Receipt Date: 20250527
  Transmission Date: 20250716
  Serious: Yes (Hospitalization)
  Sender: AMGEN
  Company Number: US-AMGEN-USASP2025099378

PATIENT
  Age: 80 Year
  Sex: Female

DRUGS (2)
  1. PROLIA [Suspect]
     Active Substance: DENOSUMAB
     Indication: Osteopenia
     Dosage: UNK, Q6MO
     Route: 065
  2. LEVOTHYROXINE [Concomitant]
     Active Substance: LEVOTHYROXINE
     Dosage: 50 MILLIGRAM, QD

REACTIONS (4)
  - Spinal operation [Unknown]
  - Nerve compression [Unknown]
  - Hypoaesthesia [Unknown]
  - Off label use [Unknown]

NARRATIVE: CASE EVENT DATE: 20250301
